FAERS Safety Report 20404393 (Version 1)
Quarter: 2022Q1

REPORT INFORMATION
  Report Type: Spontaneous
  Country: US (occurrence: US)
  Receive Date: 20220131
  Receipt Date: 20220131
  Transmission Date: 20220424
  Serious: No
  Sender: FDA-Public Use
  Company Number: US-SA-SAC20220127000403

PATIENT
  Age: 71 Year
  Sex: Male

DRUGS (1)
  1. DUPIXENT [Suspect]
     Active Substance: DUPILUMAB
     Dosage: 300 MG, QOW
     Route: 058
     Dates: start: 20211116

REACTIONS (5)
  - Pigmentation disorder [Unknown]
  - Burning sensation [Unknown]
  - Pruritus [Unknown]
  - Oral herpes [Unknown]
  - Rash [Unknown]

NARRATIVE: CASE EVENT DATE: 20211225
